FAERS Safety Report 8467433-8 (Version None)
Quarter: 2012Q2

REPORT INFORMATION
  Report Type: 
  Country: None (occurrence: None)
  Receive Date: 20120626
  Receipt Date: 20120404
  Transmission Date: 20120825
  Serious: No
  Sender: FDA-Public Use
  Company Number: US-ASTRAZENECA-2011SE63942

PATIENT
  Age: 67 Year
  Sex: Male

DRUGS (5)
  1. MEVACOR [Concomitant]
     Indication: HYPERCHOLESTEROLAEMIA
  2. LEVOTHYROXINE SODIUM [Concomitant]
     Indication: HYPOTHYROIDISM
  3. CAPRELSA [Suspect]
     Indication: THYROID CANCER
     Route: 048
     Dates: start: 20110901
  4. WARFARIN SODIUM [Concomitant]
  5. ACETAMINOPHEN [Concomitant]

REACTIONS (7)
  - EPISTAXIS [None]
  - ARTHRALGIA [None]
  - OROPHARYNGEAL PAIN [None]
  - FATIGUE [None]
  - PAIN [None]
  - ACNE [None]
  - RASH [None]
